FAERS Safety Report 12432494 (Version 1)
Quarter: 2016Q2

REPORT INFORMATION
  Report Type: Spontaneous
  Country: US (occurrence: None)
  Receive Date: 20160602
  Receipt Date: 20160602
  Transmission Date: 20160815
  Serious: Yes (Other)
  Sender: FDA-Public Use
  Company Number: None

PATIENT
  Age: 65 Year
  Sex: Male
  Weight: 77.11 kg

DRUGS (2)
  1. METFORMIN HCL [Suspect]
     Active Substance: METFORMIN HYDROCHLORIDE
     Indication: TYPE 2 DIABETES MELLITUS
     Dosage: 180 TABLET ONCE A DAY
     Route: 048
     Dates: start: 20160510, end: 20160601
  2. RAMAPRIL [Concomitant]

REACTIONS (4)
  - Product odour abnormal [None]
  - Blood glucose increased [None]
  - Product measured potency issue [None]
  - Product quality issue [None]

NARRATIVE: CASE EVENT DATE: 20160511
